FAERS Safety Report 15635705 (Version 3)
Quarter: 2018Q4

REPORT INFORMATION
  Report Type: Report from Study
  Country: US (occurrence: US)
  Receive Date: 20181120
  Receipt Date: 20181218
  Transmission Date: 20190205
  Serious: No
  Sender: FDA-Public Use
  Company Number: PHEH2018US049174

PATIENT
  Sex: Male

DRUGS (1)
  1. ENTRESTO [Suspect]
     Active Substance: SACUBITRIL\VALSARTAN
     Indication: CARDIAC FAILURE CHRONIC
     Dosage: 1 DF (SACUBITRIL 49MG, VALSARTAN 51MG), BID
     Route: 048
     Dates: start: 20181105

REACTIONS (3)
  - Pruritus [Unknown]
  - Lithiasis [Unknown]
  - Blood urine present [Unknown]
